FAERS Safety Report 16123454 (Version 1)
Quarter: 2019Q1

REPORT INFORMATION
  Report Type: Spontaneous
  Country: CH (occurrence: CH)
  Receive Date: 20190327
  Receipt Date: 20190327
  Transmission Date: 20190418
  Serious: Yes (Death, Hospitalization)
  Sender: FDA-Public Use
  Company Number: PHHY2019CH064575

PATIENT
  Age: 47 Year
  Sex: Female

DRUGS (20)
  1. TRANXILIUM [Concomitant]
     Active Substance: CLORAZEPATE DIPOTASSIUM
     Indication: SCHIZOAFFECTIVE DISORDER
     Route: 048
     Dates: start: 20181119
  2. VENTOLIN [Interacting]
     Active Substance: ALBUTEROL SULFATE
     Indication: CHRONIC OBSTRUCTIVE PULMONARY DISEASE
     Dosage: 100 MICROGRAMS ON HAND MAXIMUM 4X/DAY; AS NECESSARY
     Route: 055
     Dates: start: 20181214
  3. ZOLPIDEM [Concomitant]
     Active Substance: ZOLPIDEM\ZOLPIDEM TARTRATE
     Indication: SCHIZOAFFECTIVE DISORDER
     Dosage: 10 MG/DAY ON HAND SINCE AT LEAST 26-NOV-2018; AS NECESSARY
     Route: 048
     Dates: start: 20181126
  4. ATORVASTATINE [Concomitant]
     Active Substance: ATORVASTATIN
     Indication: HYPERCHOLESTEROLAEMIA
     Dosage: 20 MG/DAY SINCE AT LEAST 19-NOV-2018
     Route: 048
     Dates: start: 20181119
  5. CERAZETTE [Concomitant]
     Indication: POLYCYSTIC OVARIES
     Route: 048
     Dates: start: 20181130
  6. CLARITHROMYCIN. [Interacting]
     Active Substance: CLARITHROMYCIN
     Indication: INFECTION
     Route: 048
     Dates: start: 20190120, end: 20190121
  7. CLOPIN ECO [Suspect]
     Active Substance: CLOZAPINE
     Indication: SCHIZOAFFECTIVE DISORDER
     Dosage: BEGINNING AT 25 MG/DAY ON 04-DEC-2018 AND INCREASED TO 300 MG/DAY ON 20-DEC-2018
     Route: 048
     Dates: start: 20181204, end: 20190119
  8. BETMIGA [Suspect]
     Active Substance: MIRABEGRON
     Indication: URINARY INCONTINENCE
     Dosage: SINCE AT LEAST APRIL 2018
     Route: 048
     Dates: start: 201804
  9. TEMESTA (LORAZEPAM) [Suspect]
     Active Substance: LORAZEPAM
     Indication: SCHIZOAFFECTIVE DISORDER
     Dosage: 2.5 MG MAXIMUM 2X/DAY ON HAND SINCE AT LEAST MAY 2018; AS NECESSARY
     Route: 048
     Dates: start: 201805
  10. DAFALGAN [Suspect]
     Active Substance: ACETAMINOPHEN
     Indication: PAIN
     Dosage: 1G MAXIMUM 3X/DAY ON HAND; AS NECESSARY
     Route: 048
     Dates: start: 20181121
  11. SYMBICORT [Concomitant]
     Active Substance: BUDESONIDE\FORMOTEROL FUMARATE DIHYDRATE
     Indication: CHRONIC OBSTRUCTIVE PULMONARY DISEASE
     Dosage: 2 INHALATIONS/DAY
     Route: 055
     Dates: start: 20181216
  12. PIPERACILLIN AND TAZOBACTAM [Suspect]
     Active Substance: PIPERACILLIN SODIUM\TAZOBACTAM SODIUM
     Indication: INFECTION
     Route: 041
     Dates: start: 20190120
  13. CIPRALEX [Interacting]
     Active Substance: ESCITALOPRAM OXALATE
     Indication: SCHIZOAFFECTIVE DISORDER
     Dosage: NORMAL LONG TERM TREATMENT
     Route: 048
  14. HALOPERIDOL. [Interacting]
     Active Substance: HALOPERIDOL
     Indication: AGITATION
     Route: 048
     Dates: start: 20190120
  15. ELTROXIN [Concomitant]
     Active Substance: LEVOTHYROXINE
     Indication: HYPOTHYROIDISM
     Dosage: SINCE AT LEAST APRIL 2018
     Route: 048
     Dates: start: 201804
  16. CALCIUM SANDOZ + WITAMIN D3 [Concomitant]
     Indication: PRODUCT USED FOR UNKNOWN INDICATION
     Route: 048
     Dates: start: 20181123
  17. DUSPATALIN [Concomitant]
     Active Substance: MEBEVERINE HYDROCHLORIDE
     Indication: IRRITABLE BOWEL SYNDROME
     Dosage: SINCE AT LEAST 19-NOV-2018
     Route: 048
     Dates: start: 20181119
  18. SPASMO-URGENIN NEO [Concomitant]
     Active Substance: TROSPIUM
     Indication: URINARY INCONTINENCE
     Route: 048
     Dates: start: 20190109
  19. METFIN [Suspect]
     Active Substance: METFORMIN HYDROCHLORIDE
     Indication: TYPE 2 DIABETES MELLITUS
     Dosage: SINCE AT LEAST 19-NOV-2018
     Route: 048
     Dates: start: 20181119
  20. INDERAL [Suspect]
     Active Substance: PROPRANOLOL HYDROCHLORIDE
     Indication: TACHYCARDIA
     Dosage: NORMAL TREATMENT FOR MANY YEARS
     Route: 048

REACTIONS (6)
  - Cough [Not Recovered/Not Resolved]
  - Cardiac arrest [Fatal]
  - Pyrexia [Not Recovered/Not Resolved]
  - Agranulocytosis [Not Recovered/Not Resolved]
  - Oropharyngeal pain [Not Recovered/Not Resolved]
  - Dyspnoea [Not Recovered/Not Resolved]

NARRATIVE: CASE EVENT DATE: 20190114
